FAERS Safety Report 7066039-5 (Version None)
Quarter: 2010Q4

REPORT INFORMATION
  Report Type: 
  Country: None (occurrence: None)
  Receive Date: 20101027
  Receipt Date: 20101007
  Transmission Date: 20110411
  Serious: Yes (Other)
  Sender: FDA-Public Use
  Company Number: US-AMGEN-QUU437707

PATIENT

DRUGS (6)
  1. NPLATE [Suspect]
     Indication: IDIOPATHIC THROMBOCYTOPENIC PURPURA
     Dosage: 4 A?G/KG, QWK
     Route: 058
     Dates: start: 20100115, end: 20100315
  2. IMMUNOGLOBULIN HUMAN ANTI-RH [Concomitant]
     Dosage: UNK UNK, UNK
     Dates: start: 20051228
  3. DOXAZOSIN MESYLATE [Concomitant]
     Dosage: 8 MG, UNK
     Route: 048
     Dates: start: 20020305
  4. DESOXIMETASONE [Concomitant]
     Dosage: .25 MG, BID
     Route: 061
     Dates: start: 20090122
  5. CARVEDILOL [Concomitant]
     Dosage: 4 MG, UNK
     Route: 048
     Dates: start: 20080421
  6. MICARDIS [Concomitant]
     Dosage: UNK UNK, QD
     Route: 048
     Dates: start: 20080825

REACTIONS (2)
  - DRUG INEFFECTIVE [None]
  - THROMBOCYTOPENIA [None]
